FAERS Safety Report 12354761 (Version 1)
Quarter: 2016Q2

REPORT INFORMATION
  Report Type: Spontaneous
  Country: US (occurrence: None)
  Receive Date: 20160510
  Receipt Date: 20160510
  Transmission Date: 20160815
  Serious: No
  Sender: FDA-Public Use
  Company Number: None

PATIENT
  Age: 48 Year
  Sex: Female

DRUGS (8)
  1. TRUVADA [Concomitant]
     Active Substance: EMTRICITABINE\TENOFOVIR DISOPROXIL FUMARATE
  2. NORVIR [Concomitant]
     Active Substance: RITONAVIR
  3. ISENTRESS [Concomitant]
     Active Substance: RALTEGRAVIR POTASSIUM
  4. PANTOTHENIC ACID [Concomitant]
     Active Substance: PANTOTHENIC ACID
  5. GENVOYA [Suspect]
     Active Substance: COBICISTAT\ELVITEGRAVIR\EMTRICITABINE\TENOFOVIR ALAFENAMIDE FUMARATE
     Indication: LIPODYSTROPHY ACQUIRED
     Dosage: TAB DAILY OR
     Route: 048
     Dates: start: 20160429
  6. ALENDRONATE [Concomitant]
     Active Substance: ALENDRONATE SODIUM
  7. PREZISTA [Concomitant]
     Active Substance: DARUNAVIR ETHANOLATE
  8. LEXAPRO [Concomitant]
     Active Substance: ESCITALOPRAM OXALATE

REACTIONS (2)
  - Arthralgia [None]
  - Fatigue [None]
